FAERS Safety Report 25583947 (Version 1)
Quarter: 2025Q3

REPORT INFORMATION
  Report Type: Spontaneous
  Country: US (occurrence: US)
  Receive Date: 20250721
  Receipt Date: 20250721
  Transmission Date: 20251021
  Serious: Yes (Other)
  Sender: BAUSCH AND LOMB
  Company Number: US-BAUSCHBL-2025BNL012629

PATIENT
  Sex: Female

DRUGS (3)
  1. XIIDRA [Suspect]
     Active Substance: LIFITEGRAST
     Indication: Product used for unknown indication
     Route: 047
  2. CEQUA [Suspect]
     Active Substance: CYCLOSPORINE
     Indication: Product used for unknown indication
     Route: 065
  3. OXERVATE [Concomitant]
     Active Substance: CENEGERMIN-BKBJ
     Indication: Product used for unknown indication

REACTIONS (5)
  - Neurotrophic keratopathy [Unknown]
  - Hypoaesthesia eye [Unknown]
  - Eyelid disorder [Unknown]
  - Skin discolouration [Unknown]
  - Wrong technique in product usage process [Unknown]
